FAERS Safety Report 9397279 (Version 6)
Quarter: 2016Q3

REPORT INFORMATION
  Report Type: Spontaneous
  Country: JP (occurrence: JP)
  Receive Date: 20130712
  Receipt Date: 20160829
  Transmission Date: 20161109
  Serious: Yes (Hospitalization)
  Sender: FDA-Public Use
  Company Number: JP-MERCK-1307JPN004858

PATIENT
  Sex: Male

DRUGS (4)
  1. BONALON [Suspect]
     Active Substance: ALENDRONATE SODIUM
     Indication: HYPOPARATHYROIDISM
     Dosage: 5 MG, QD
     Route: 048
     Dates: start: 2001, end: 201306
  2. VITAMIN D [Concomitant]
     Active Substance: CHOLECALCIFEROL
     Indication: HYPOPARATHYROIDISM
     Dosage: UNK
     Route: 048
     Dates: start: 1990
  3. CIBENOL [Suspect]
     Active Substance: CIFENLINE
     Dosage: UNK
     Route: 048
  4. PHYTONADIONE. [Concomitant]
     Active Substance: PHYTONADIONE
     Indication: HYPOPARATHYROIDISM
     Dosage: UNK
     Route: 048
     Dates: start: 1990

REACTIONS (10)
  - Dyspnoea [Recovered/Resolved]
  - Herpes zoster [Unknown]
  - Constipation [Not Recovered/Not Resolved]
  - Osteonecrosis of jaw [Not Recovered/Not Resolved]
  - Dizziness [Recovered/Resolved]
  - Dizziness postural [Recovered/Resolved]
  - Supraventricular extrasystoles [Recovered/Resolved]
  - Arthralgia [Unknown]
  - Hepatic function abnormal [Recovered/Resolved]
  - Diarrhoea [Not Recovered/Not Resolved]

NARRATIVE: CASE EVENT DATE: 2003
